FAERS Safety Report 11180819 (Version 1)
Quarter: 2015Q2

REPORT INFORMATION
  Report Type: Spontaneous
  Country: IT (occurrence: IT)
  Receive Date: 20150611
  Receipt Date: 20150611
  Transmission Date: 20150821
  Serious: Yes (Life-Threatening)
  Sender: FDA-Public Use
  Company Number: IT-ACTAVIS-2015-11232

PATIENT
  Age: 59 Year
  Sex: Female

DRUGS (2)
  1. OXALIPLATINO ACTAVIS [Suspect]
     Active Substance: OXALIPLATIN
     Indication: RECTAL ADENOCARCINOMA
     Dosage: 126 MG, CYCLICAL
     Route: 042
     Dates: start: 20150506, end: 20150525
  2. CALCIO LEVOFOLINATO [Concomitant]
     Active Substance: LEVOLEUCOVORIN CALCIUM
     Indication: PRODUCT USED FOR UNKNOWN INDICATION
     Dosage: 149 MG, UNKNOWN
     Route: 042
     Dates: start: 20150506, end: 20150525

REACTIONS (3)
  - Cardiac arrest [Recovered/Resolved]
  - Hypovolaemic shock [Recovered/Resolved]
  - Retching [Recovered/Resolved]

NARRATIVE: CASE EVENT DATE: 20150525
